FAERS Safety Report 11190647 (Version 1)
Quarter: 2015Q2

REPORT INFORMATION
  Report Type: Other
  Country: US (occurrence: US)
  Receive Date: 20150615
  Receipt Date: 20150615
  Transmission Date: 20150821
  Serious: Yes (Other)
  Sender: FDA-Public Use
  Company Number: US-ENDO PHARMACEUTICALS INC-201503179

PATIENT
  Age: 27 Year
  Sex: Male

DRUGS (5)
  1. STRIANT [Suspect]
     Active Substance: TESTOSTERONE
     Indication: VIRILISM
     Route: 065
  2. FORTESTA [Suspect]
     Active Substance: TESTOSTERONE
     Indication: VIRILISM
     Route: 065
  3. TESTIM [Suspect]
     Active Substance: TESTOSTERONE
     Indication: VIRILISM
     Route: 065
  4. TESTOPEL [Suspect]
     Active Substance: TESTOSTERONE
     Indication: VIRILISM
     Route: 065
  5. DELATESTRYL [Suspect]
     Active Substance: TESTOSTERONE ENANTHATE
     Indication: VIRILISM
     Route: 065

REACTIONS (3)
  - Product use issue [Unknown]
  - Breast cancer male [Unknown]
  - Depression suicidal [Unknown]
